FAERS Safety Report 13633079 (Version 1)
Quarter: 2017Q2

REPORT INFORMATION
  Report Type: Spontaneous
  Country: US (occurrence: US)
  Receive Date: 20170531
  Receipt Date: 20170531
  Transmission Date: 20170830
  Serious: No
  Sender: FDA-Public Use
  Company Number: US-ASTELLAS-1504602

PATIENT
  Age: 71 Year
  Sex: Female

DRUGS (10)
  1. TARCEVA [Suspect]
     Active Substance: ERLOTINIB HYDROCHLORIDE
     Indication: BRONCHIAL CARCINOMA
     Route: 048
     Dates: start: 20141010
  2. SENNA LAXATIVE [Concomitant]
     Active Substance: SENNOSIDES
  3. AMITRIPTYLINE [Concomitant]
     Active Substance: AMITRIPTYLINE
     Route: 065
  4. WARFARIN [Concomitant]
     Active Substance: WARFARIN
  5. DEXAMETHASONE. [Concomitant]
     Active Substance: DEXAMETHASONE
  6. OXYCODONE [Concomitant]
     Active Substance: OXYCODONE
  7. MILK OF MAGNESIA [Concomitant]
     Active Substance: MAGNESIUM HYDROXIDE
  8. MORPHINE SULFATE. [Concomitant]
     Active Substance: MORPHINE SULFATE
  9. DOCQLACE [Concomitant]
     Active Substance: DOCUSATE SODIUM
  10. TARCEVA [Suspect]
     Active Substance: ERLOTINIB HYDROCHLORIDE
     Indication: LUNG NEOPLASM MALIGNANT

REACTIONS (1)
  - Weight decreased [Not Recovered/Not Resolved]

NARRATIVE: CASE EVENT DATE: 201411
